APPROVED DRUG PRODUCT: SCOPOLAMINE
Active Ingredient: SCOPOLAMINE
Strength: 1MG/72HR
Dosage Form/Route: SYSTEM;TRANSDERMAL
Application: A212342 | Product #001 | TE Code: AB
Applicant: RICONPHARMA LLC
Approved: Nov 24, 2020 | RLD: No | RS: Yes | Type: RX